FAERS Safety Report 6640948-0 (Version None)
Quarter: 2010Q1

REPORT INFORMATION
  Report Type: 
  Country: None (occurrence: None)
  Receive Date: 20100318
  Receipt Date: 20100309
  Transmission Date: 20100710
  Serious: Yes (Hospitalization)
  Sender: FDA-Public Use
  Company Number: JP-ROCHE-688797

PATIENT
  Sex: Male
  Weight: 73 kg

DRUGS (16)
  1. AVASTIN [Suspect]
     Indication: COLON CANCER METASTATIC
     Route: 041
     Dates: start: 20080827, end: 20081105
  2. AVASTIN [Suspect]
     Route: 041
     Dates: start: 20081126, end: 20090312
  3. AVASTIN [Suspect]
     Route: 041
     Dates: start: 20090924, end: 20100210
  4. ELPLAT [Suspect]
     Indication: COLON CANCER METASTATIC
     Route: 041
     Dates: start: 20080827, end: 20100210
  5. FLUOROURACIL [Suspect]
     Indication: COLON CANCER METASTATIC
     Route: 042
     Dates: end: 20100212
  6. CALCIUM LEVOFOLINATE [Suspect]
     Indication: COLON CANCER METASTATIC
     Dosage: DRUG REPORTED AS LEVOFOLINATE CALCIUM
     Route: 041
     Dates: end: 20100210
  7. URSO 250 [Concomitant]
     Route: 048
     Dates: start: 20071126
  8. HEPARIN SODIUM [Concomitant]
     Route: 041
     Dates: start: 20080827, end: 20100212
  9. DECADRON [Concomitant]
     Route: 042
     Dates: start: 20080827, end: 20100210
  10. GRANISETRON [Concomitant]
     Route: 042
     Dates: start: 20080827, end: 20100210
  11. SEROTONE [Concomitant]
     Route: 048
     Dates: start: 20080827, end: 20100215
  12. HANGE-SHASHIN-TO [Concomitant]
     Dosage: FORM: GRANULATED POWDER.
     Route: 048
     Dates: start: 20080827
  13. DECADRON [Concomitant]
     Route: 048
     Dates: start: 20080827, end: 20100215
  14. PARIET [Concomitant]
     Route: 048
     Dates: start: 20080827
  15. VITAMEDIN [Concomitant]
     Route: 048
     Dates: start: 20080827
  16. PROMAC [Concomitant]
     Route: 048
     Dates: start: 20080827

REACTIONS (3)
  - ABDOMINAL PAIN UPPER [None]
  - CHOLELITHIASIS [None]
  - PORCELAIN GALLBLADDER [None]
